FAERS Safety Report 6130110-2 (Version None)
Quarter: 2009Q1

REPORT INFORMATION
  Report Type: 
  Country: None (occurrence: None)
  Receive Date: 20090324
  Receipt Date: 20090312
  Transmission Date: 20090719
  Serious: Yes (Other)
  Sender: FDA-Public Use
  Company Number: US-WYE-H08568809

PATIENT
  Age: 43 Year
  Sex: Female

DRUGS (1)
  1. PRISTIQ [Suspect]
     Indication: HOT FLUSH
     Route: 048
     Dates: start: 20090311

REACTIONS (4)
  - ACTIVITIES OF DAILY LIVING IMPAIRED [None]
  - HOSTILITY [None]
  - IRRITABILITY [None]
  - VIOLENCE-RELATED SYMPTOM [None]
